FAERS Safety Report 21380454 (Version 1)
Quarter: 2022Q3

REPORT INFORMATION
  Report Type: Spontaneous
  Country: US (occurrence: None)
  Receive Date: 20220923
  Receipt Date: 20220923
  Transmission Date: 20221026
  Serious: Yes (Death)
  Sender: FDA-Public Use
  Company Number: None

PATIENT
  Sex: Male

DRUGS (2)
  1. TACROLIMUS [Suspect]
     Active Substance: TACROLIMUS
     Indication: Transplant
     Dosage: TK 2 CS PO IN THE MORNING AND 1 C IN THE EVENING UTD?
     Route: 048
     Dates: start: 20220706, end: 2022
  2. PREVYMIS [Concomitant]
     Active Substance: LETERMOVIR

REACTIONS (1)
  - Death [None]
